FAERS Safety Report 10027409 (Version 1)
Quarter: 2014Q1

REPORT INFORMATION
  Report Type: Spontaneous
  Country: US (occurrence: US)
  Receive Date: 20140321
  Receipt Date: 20140321
  Transmission Date: 20141002
  Serious: No
  Sender: FDA-Public Use
  Company Number: US-PFIZER INC-2014076576

PATIENT
  Age: 52 Year
  Sex: Male
  Weight: 67.12 kg

DRUGS (2)
  1. VIAGRA [Suspect]
     Indication: OCULOPHARYNGEAL DYSTROPHY
     Dosage: 25 MG, ALTERNATE DAY
     Dates: start: 2010
  2. VIAGRA [Suspect]
     Indication: ERECTILE DYSFUNCTION

REACTIONS (3)
  - Muscle spasms [Unknown]
  - Blood cholesterol increased [Unknown]
  - Vitamin D decreased [Unknown]
